FAERS Safety Report 6132007-0 (Version None)
Quarter: 2009Q1

REPORT INFORMATION
  Report Type: 
  Country: None (occurrence: None)
  Receive Date: 20090325
  Receipt Date: 20090316
  Transmission Date: 20090719
  Serious: Yes (Other)
  Sender: FDA-Public Use
  Company Number: PHHY2009JP09536

PATIENT
  Age: 63 Year
  Sex: Male

DRUGS (2)
  1. DIOVAN [Suspect]
     Dosage: 20 MG
     Route: 048
     Dates: start: 20071001, end: 20080401
  2. VOLTAREN [Suspect]

REACTIONS (2)
  - EOSINOPHILIC PNEUMONIA [None]
  - PLATELET COUNT DECREASED [None]
